FAERS Safety Report 13510600 (Version 2)
Quarter: 2017Q2

REPORT INFORMATION
  Report Type: Spontaneous
  Country: JP (occurrence: JP)
  Receive Date: 20170503
  Receipt Date: 20170602
  Transmission Date: 20170830
  Serious: Yes (Other)
  Sender: FDA-Public Use
  Company Number: JP-GILEAD-2017-0270916

PATIENT
  Age: 80 Year
  Sex: Female

DRUGS (3)
  1. DORNER [Concomitant]
     Active Substance: BERAPROST SODIUM
  2. BERAPROST SODIUM [Concomitant]
     Active Substance: BERAPROST SODIUM
     Dosage: UNK
  3. AMBRISENTAN [Suspect]
     Active Substance: AMBRISENTAN
     Indication: PULMONARY ARTERIAL HYPERTENSION
     Dosage: 5 MG, QD
     Route: 048

REACTIONS (1)
  - Pancytopenia [Not Recovered/Not Resolved]
